FAERS Safety Report 11623466 (Version 1)
Quarter: 2015Q4

REPORT INFORMATION
  Report Type: Spontaneous
  Country: US (occurrence: US)
  Receive Date: 20151013
  Receipt Date: 20151013
  Transmission Date: 20160304
  Serious: No
  Sender: FDA-Public Use
  Company Number: US-JNJFOC-20150111065

PATIENT
  Age: 5 Year
  Sex: Male
  Weight: 19.96 kg

DRUGS (1)
  1. CHILDREN^S PARACETAMOL [Suspect]
     Active Substance: ACETAMINOPHEN
     Indication: PRODUCT USED FOR UNKNOWN INDICATION
     Dosage: GIVEN 3 TABLETS AND ANOTHER 3 AN HOUR AFTER
     Route: 048
     Dates: start: 20110817, end: 20110817

REACTIONS (1)
  - Inappropriate schedule of drug administration [Unknown]
